FAERS Safety Report 14506622 (Version 1)
Quarter: 2018Q1

REPORT INFORMATION
  Report Type: Spontaneous
  Country: US (occurrence: US)
  Receive Date: 20180207
  Receipt Date: 20180207
  Transmission Date: 20180509
  Serious: Yes (Other)
  Sender: FDA-Public Use
  Company Number: None

PATIENT

DRUGS (1)
  1. WARFARIN [Suspect]
     Active Substance: WARFARIN

REACTIONS (6)
  - Cough [None]
  - Dyspnoea [None]
  - International normalised ratio increased [None]
  - Haemoglobin decreased [None]
  - Pleuritic pain [None]
  - Haematocrit decreased [None]
